FAERS Safety Report 5263256-1 (Version None)
Quarter: 2007Q1

REPORT INFORMATION
  Report Type: 
  Country: None (occurrence: None)
  Receive Date: 20061219
  Receipt Date: 20060922
  Transmission Date: 20070707
  Serious: No
  Sender: FDA-Public Use
  Company Number: 2006US002216

PATIENT
  Age: 80 Year
  Sex: Male

DRUGS (5)
  1. VESICARE [Suspect]
     Dosage: 10 MG, UID/QD, ORAL
     Route: 048
     Dates: start: 20060101
  2. DIOVAN [Concomitant]
  3. NORVASC [Concomitant]
  4. METFORMIN (METFORMIN HYDROCHLORIDE) [Concomitant]
  5. PRAVASTATIN [Concomitant]

REACTIONS (2)
  - INSOMNIA [None]
  - NOCTURIA [None]
